FAERS Safety Report 25186719 (Version 3)
Quarter: 2025Q2

REPORT INFORMATION
  Report Type: Spontaneous
  Country: JP (occurrence: JP)
  Receive Date: 20250411
  Receipt Date: 20250417
  Transmission Date: 20250717
  Serious: No
  Sender: SANOFI AVENTIS
  Company Number: JP-SA-2025SA098523

PATIENT
  Age: 23 Year
  Sex: Male

DRUGS (1)
  1. ALTUVIIIO [Suspect]
     Active Substance: EFANESOCTOCOG ALFA
     Indication: Haemophilia
     Dosage: 2000 IU, QW
     Route: 042
     Dates: start: 20241205, end: 20250327

REACTIONS (1)
  - Haemophilia A without inhibitors [Unknown]

NARRATIVE: CASE EVENT DATE: 20250327
